FAERS Safety Report 8431133-0 (Version None)
Quarter: 2012Q2

REPORT INFORMATION
  Report Type: 
  Country: None (occurrence: None)
  Receive Date: 20120612
  Receipt Date: 20120605
  Transmission Date: 20120825
  Serious: Yes (Hospitalization, Disabling, Other)
  Sender: FDA-Public Use
  Company Number: US-MERCK-1201USA00812

PATIENT
  Age: 65 Year
  Sex: Female
  Weight: 70 kg

DRUGS (8)
  1. VITAMIN D (UNSPECIFIED) [Concomitant]
     Route: 048
     Dates: start: 20010101
  2. SOMINEX (DIPHENHYDRAMINE HYDROCHLORIDE) [Concomitant]
     Indication: HYPERSENSITIVITY
     Route: 065
  3. CALCIUM (UNSPECIFIED) [Concomitant]
     Route: 048
     Dates: start: 19880101
  4. MELATONIN [Concomitant]
     Route: 048
     Dates: start: 20010101
  5. BONIVA [Suspect]
     Route: 065
  6. FOSAMAX [Suspect]
     Indication: OSTEOPOROSIS
     Route: 048
     Dates: start: 20080201
  7. OMEPRAZOLE [Concomitant]
     Route: 065
  8. ALENDRONATE SODIUM [Suspect]
     Route: 048
     Dates: start: 20080301, end: 20091201

REACTIONS (28)
  - ARTHRITIS [None]
  - SPINAL DISORDER [None]
  - PLEURAL EFFUSION [None]
  - BURSITIS [None]
  - HIATUS HERNIA [None]
  - DYSPNOEA [None]
  - PNEUMONIA [None]
  - INTESTINAL OBSTRUCTION [None]
  - HYPOXIA [None]
  - HIP ARTHROPLASTY [None]
  - BONE FRAGMENTATION [None]
  - BLOOD CORTISOL INCREASED [None]
  - AORTIC STENOSIS [None]
  - WEIGHT INCREASED [None]
  - PULMONARY OEDEMA [None]
  - LYMPHADENOPATHY MEDIASTINAL [None]
  - THYROID DISORDER [None]
  - DENTAL CARIES [None]
  - FATIGUE [None]
  - FEMUR FRACTURE [None]
  - OSTEONECROSIS [None]
  - SPINAL COMPRESSION FRACTURE [None]
  - FALL [None]
  - CARDIAC DISORDER [None]
  - CONTUSION [None]
  - KYPHOSIS [None]
  - DIARRHOEA [None]
  - HYPERLIPIDAEMIA [None]
